FAERS Safety Report 15124231 (Version 1)
Quarter: 2018Q3

REPORT INFORMATION
  Report Type: Report from Study
  Country: FR (occurrence: FR)
  Receive Date: 20180710
  Receipt Date: 20180710
  Transmission Date: 20181010
  Serious: Yes (Other)
  Sender: FDA-Public Use
  Company Number: FR-ROCHE-2035269

PATIENT
  Age: 73 Year
  Sex: Female

DRUGS (12)
  1. LEVOTHYROX [Concomitant]
     Active Substance: LEVOTHYROXINE
  2. MICARDIS [Concomitant]
     Active Substance: TELMISARTAN
  3. BLINDED ATEZOLIZUMAB [Suspect]
     Active Substance: ATEZOLIZUMAB
     Indication: NEOPLASM MALIGNANT
     Dosage: DAY 1 FOR 6 CYCLES
     Route: 042
     Dates: start: 20161214
  4. LANSOPRAZOLE. [Concomitant]
     Active Substance: LANSOPRAZOLE
  5. CARBOPLATIN. [Suspect]
     Active Substance: CARBOPLATIN
     Indication: NEOPLASM MALIGNANT
     Dosage: (AUC =5 ON DAY 1)
     Route: 042
     Dates: start: 20161214, end: 20170503
  6. BLINDED ATEZOLIZUMAB [Suspect]
     Active Substance: ATEZOLIZUMAB
     Dosage: MOST RECENT DOSE RECEIVED ON 21/FEB/2018
     Route: 042
     Dates: start: 20171018
  7. BEVACIZUMAB. [Suspect]
     Active Substance: BEVACIZUMAB
     Indication: NEOPLASM MALIGNANT
     Dosage: DAY 1 FOR 6 CYCLES
     Route: 042
     Dates: start: 20161214, end: 20171220
  8. BEVACIZUMAB. [Suspect]
     Active Substance: BEVACIZUMAB
     Dosage: MAINTENANCE DOSE
     Route: 042
     Dates: end: 20170517
  9. OROCAL D3 [Concomitant]
     Active Substance: CALCIUM CARBONATE\CHOLECALCIFEROL
  10. DYNEXAN (FRANCE) [Concomitant]
  11. BLINDED ATEZOLIZUMAB [Suspect]
     Active Substance: ATEZOLIZUMAB
     Dosage: MAINTENANCE DOSE
     Route: 042
     Dates: end: 20170517
  12. PEGYLATED LIPOSOMAL DOXORUBICIN [Suspect]
     Active Substance: DOXORUBICIN
     Indication: NEOPLASM MALIGNANT
     Route: 042
     Dates: start: 20161214, end: 20170503

REACTIONS (2)
  - Autoimmune colitis [Recovered/Resolved]
  - Autoimmune colitis [Unknown]

NARRATIVE: CASE EVENT DATE: 20170923
